FAERS Safety Report 8118768-X (Version None)
Quarter: 2012Q1

REPORT INFORMATION
  Report Type: 
  Country: None (occurrence: None)
  Receive Date: 20120202
  Receipt Date: 20120118
  Transmission Date: 20120608
  Serious: Yes (Other)
  Sender: FDA-Public Use
  Company Number: AUR-APL-2012-00571

PATIENT
  Age: 64 Year
  Sex: Male

DRUGS (8)
  1. LISINOPRIL [Concomitant]
  2. ALLOPURINOL [Concomitant]
  3. ASPIRIN [Concomitant]
  4. NAPROXEN [Concomitant]
  5. RAMIPRIL [Suspect]
     Indication: HYPERTENSION
     Dosage: 5 MG (5 MG, 1 IN 1 D), ORAL
     Route: 048
     Dates: start: 20111212, end: 20120105
  6. BISACODYL [Concomitant]
  7. OMEPRAZOLE [Concomitant]
  8. COLCHICINE [Concomitant]

REACTIONS (2)
  - GOUT [None]
  - CONDITION AGGRAVATED [None]
